FAERS Safety Report 13360039 (Version 1)
Quarter: 2017Q1

REPORT INFORMATION
  Report Type: Spontaneous
  Country: US (occurrence: US)
  Receive Date: 20170322
  Receipt Date: 20170322
  Transmission Date: 20170429
  Serious: Yes (Other)
  Sender: FDA-Public Use
  Company Number: US-SAOL THERAPEUTICS-2017SAO00503

PATIENT
  Sex: Male

DRUGS (1)
  1. BACLOFEN. [Suspect]
     Active Substance: BACLOFEN
     Dosage: 36 ?G, \DAY
     Route: 037

REACTIONS (3)
  - Spinal operation [Unknown]
  - Muscle spasticity [Recovered/Resolved]
  - Device damage [Recovered/Resolved]
